FAERS Safety Report 16638671 (Version 2)
Quarter: 2019Q3

REPORT INFORMATION
  Report Type: Spontaneous
  Country: CZ (occurrence: CZ)
  Receive Date: 20190726
  Receipt Date: 20190828
  Transmission Date: 20191004
  Serious: Yes (Other)
  Sender: FDA-Public Use
  Company Number: CZ-MYLANLABS-2019M1069235

PATIENT
  Age: 65 Year
  Sex: Female

DRUGS (4)
  1. OXALIPLATIN. [Suspect]
     Active Substance: OXALIPLATIN
     Indication: METASTASES TO LIVER
     Dosage: UNK, Q2W/ONCE PER TWO WEEKS
     Route: 065
     Dates: start: 201509
  2. VECTIBIX [Suspect]
     Active Substance: PANITUMUMAB
     Indication: METASTASES TO LIVER
     Dosage: UNK, Q2W/ONCE PER TWO WEEKS
     Route: 065
     Dates: start: 201509, end: 201609
  3. FLUOROURACIL. [Suspect]
     Active Substance: FLUOROURACIL
     Indication: METASTASES TO LIVER
     Dosage: UNK, Q2W/ONCE PER TWO WEEKS
     Dates: start: 201509
  4. FOLINIC ACID [Suspect]
     Active Substance: LEUCOVORIN
     Indication: METASTASES TO LIVER
     Dosage: UNK, Q2W/ONCE PER TWO WEEKS
     Dates: start: 201509

REACTIONS (9)
  - Neuropathy peripheral [Unknown]
  - Thrombocytopenia [Unknown]
  - Dermatitis acneiform [Recovered/Resolved]
  - Hypertrichosis [Recovered/Resolved]
  - Toxicity to various agents [Unknown]
  - Anaemia [Unknown]
  - Herpes simplex [Unknown]
  - Nausea [Recovered/Resolved]
  - Epistaxis [Recovered/Resolved]
